FAERS Safety Report 6033065-4 (Version None)
Quarter: 2009Q1

REPORT INFORMATION
  Report Type: 
  Country: None (occurrence: None)
  Receive Date: 20090105
  Receipt Date: 20071127
  Transmission Date: 20090719
  Serious: Yes (Other)
  Sender: FDA-Public Use
  Company Number: BDI-010583

PATIENT
  Age: 83 Year
  Sex: Female
  Weight: 61 kg

DRUGS (9)
  1. MULTIHANCE [Suspect]
     Indication: ANGIOGRAM
     Dosage: 10ML ONCE INTRAVENOUS (NOT OTHERWISE SPECIFIED)
     Route: 042
     Dates: start: 20071013, end: 20071013
  2. ULTRAM [Concomitant]
  3. SINGULAIR [Concomitant]
  4. SIMVASTATIN [Concomitant]
  5. PLAVIX [Concomitant]
  6. GLIPIZIDE [Concomitant]
  7. FOSAMAX [Concomitant]
  8. DIOVAN [Concomitant]
  9. CALVITE (CALCIUM PHOSPHATE; CALCIUM SODIUM LACTATE;ERGOCALCIFEROL) [Concomitant]

REACTIONS (1)
  - HYPERSENSITIVITY [None]
